FAERS Safety Report 4773222-8 (Version None)
Quarter: 2005Q3

REPORT INFORMATION
  Report Type: 
  Country: None (occurrence: None)
  Receive Date: 20050919
  Receipt Date: 20050629
  Transmission Date: 20060218
  Serious: Yes (Hospitalization)
  Sender: FDA-Public Use
  Company Number: US-MERCK-0507USA00188

PATIENT
  Age: 50 Year
  Sex: Male
  Weight: 91 kg

DRUGS (10)
  1. VIOXX [Suspect]
     Indication: ARTHRITIS
     Route: 048
     Dates: start: 20010512, end: 20040801
  2. XANAX [Concomitant]
     Route: 048
     Dates: start: 19960403
  3. LASIX [Concomitant]
     Route: 048
     Dates: start: 19990402
  4. IMDUR [Concomitant]
     Route: 048
     Dates: start: 19990604
  5. NEXIUM [Concomitant]
     Route: 048
     Dates: start: 20020206
  6. SEROQUEL [Concomitant]
     Route: 048
     Dates: start: 19990305
  7. DOXEPIN HYDROCHLORIDE [Concomitant]
     Route: 065
  8. INSULIN, BIPHASIC ISOPHANE [INJECTION] [Concomitant]
     Route: 065
  9. HUMULIN [Concomitant]
     Route: 065
  10. DEPAKOTE [Concomitant]
     Route: 048

REACTIONS (15)
  - ABDOMINAL PAIN [None]
  - ANGINA PECTORIS [None]
  - CHEST PAIN [None]
  - COLONIC POLYP [None]
  - CORONARY ARTERY DISEASE [None]
  - CORONARY ARTERY OCCLUSION [None]
  - CORONARY ARTERY STENOSIS [None]
  - GOUTY ARTHRITIS [None]
  - INTERMITTENT CLAUDICATION [None]
  - LIMB DISCOMFORT [None]
  - LOBAR PNEUMONIA [None]
  - MICROANGIOPATHY [None]
  - MYOCARDIAL INFARCTION [None]
  - NON-CARDIAC CHEST PAIN [None]
  - POLYP [None]
